FAERS Safety Report 9677305 (Version 1)
Quarter: 2013Q4

REPORT INFORMATION
  Report Type: Spontaneous
  Country: US (occurrence: None)
  Receive Date: 20131107
  Receipt Date: 20131107
  Transmission Date: 20140711
  Serious: Yes (Disabling)
  Sender: FDA-Public Use
  Company Number: None

PATIENT
  Age: 63 Year
  Sex: Male
  Weight: 72.58 kg

DRUGS (3)
  1. AZITHROMYCIN [Suspect]
     Indication: BRONCHITIS
     Dosage: 2 ONCE DAILY
     Route: 048
     Dates: start: 20131031, end: 20131106
  2. SYNTHROID [Concomitant]
  3. GINKO BILOBA [Concomitant]

REACTIONS (1)
  - Arrhythmia [None]
